FAERS Safety Report 10068547 (Version 1)
Quarter: 2014Q2

REPORT INFORMATION
  Report Type: Spontaneous
  Country: FR (occurrence: FR)
  Receive Date: 20140409
  Receipt Date: 20140409
  Transmission Date: 20141212
  Serious: Yes (Hospitalization)
  Sender: FDA-Public Use
  Company Number: FR-TEVA-473223ISR

PATIENT
  Age: 57 Year
  Sex: Male

DRUGS (12)
  1. FLUOROURACILE [Suspect]
     Indication: RECTAL CANCER METASTATIC
     Dosage: NEOADJUVANT CHEMOTHERAPY, FIRST COURSE OF FIRST-LINE CHEMOTHERAPY
     Route: 042
     Dates: start: 20090728
  2. FLUOROURACILE [Suspect]
     Dosage: FIRST COURSE OF SECOND-LINE CHEMOTHERAPY
     Route: 042
     Dates: start: 20110830
  3. FLUOROURACILE [Suspect]
     Dosage: FIRST COURSE OF THIRD-LINE TREATMENT
     Route: 042
     Dates: start: 20111226
  4. FLUOROURACILE [Suspect]
     Dosage: DECREASE TO 90% OF INITIAL DOSE
     Route: 042
     Dates: start: 20120521
  5. OXALIPLATINE TEVA [Suspect]
     Indication: RECTAL CANCER METASTATIC
     Dosage: NEOADJUVANT CHEMOTHERAPY, FIRST COURSE OF FIRST-LINE OF CHEMOTHERAPY
     Route: 042
     Dates: start: 20090728
  6. OXALIPLATINE TEVA [Suspect]
     Dosage: DECREASE TO 80 PERCENT OF INITIAL DOSE
     Route: 042
     Dates: start: 20091008
  7. OXALIPLATINE TEVA [Suspect]
     Dosage: FIRST COURSE OF SECOND-LINE CHEMOTHERAPY
     Route: 042
     Dates: start: 20110830
  8. OXALIPLATINE TEVA [Suspect]
     Route: 042
     Dates: end: 20111226
  9. IRINOTECAN MYLAN [Suspect]
     Indication: RECTAL CANCER METASTATIC
     Dosage: FIRST COURSE OF SECOND-LINE CHEMOTHERAPY
     Route: 042
     Dates: start: 20110830
  10. IRINOTECAN MYLAN [Suspect]
     Dosage: FIRST COURSE OF THIRD-LINE CHEMOTHERAPY
     Dates: end: 20111226
  11. IRINOTECAN MYLAN [Suspect]
     Dates: end: 20120302
  12. AVASTIN [Concomitant]
     Indication: RECTAL CANCER METASTATIC
     Dosage: FIRST COURSE OF THIRD-LINE CHEMOTHERAPY
     Dates: start: 20141226

REACTIONS (2)
  - Agranulocytosis [Recovered/Resolved]
  - Thrombocytopenia [Recovered/Resolved]
